FAERS Safety Report 6814246-6 (Version None)
Quarter: 2010Q2

REPORT INFORMATION
  Report Type: 
  Country: None (occurrence: None)
  Receive Date: 20100629
  Receipt Date: 20100621
  Transmission Date: 20101027
  Serious: No
  Sender: FDA-Public Use
  Company Number: 2010060053

PATIENT
  Age: 48 Year
  Sex: Female

DRUGS (1)
  1. ONSOLIS [Suspect]
     Indication: PAIN
     Dosage: BU
     Route: 002

REACTIONS (1)
  - INTERCEPTED DRUG DISPENSING ERROR [None]
